FAERS Safety Report 7786436-X (Version None)
Quarter: 2011Q3

REPORT INFORMATION
  Report Type: 
  Country: None (occurrence: None)
  Receive Date: 20110928
  Receipt Date: 20110928
  Transmission Date: 20111222
  Serious: No
  Sender: FDA-Public Use
  Company Number: None

PATIENT
  Age: 25 Year
  Sex: Male
  Weight: 113.3993 kg

DRUGS (1)
  1. PREDNISONE [Suspect]
     Indication: RENAL FAILURE CHRONIC
     Dosage: 60MG DAILY, WHEENED DOWN MONTHLY TO 5MG DALY
     Dates: start: 20090701, end: 20110801

REACTIONS (2)
  - OSTEONECROSIS [None]
  - CATARACT [None]
